FAERS Safety Report 8092376-1 (Version None)
Quarter: 2012Q1

REPORT INFORMATION
  Report Type: 
  Country: None (occurrence: None)
  Receive Date: 20120128
  Receipt Date: 20110824
  Transmission Date: 20120608
  Serious: No
  Sender: FDA-Public Use
  Company Number: US-ABBOTT-11P-163-0849182-00

PATIENT
  Age: 21 Year
  Sex: Female

DRUGS (1)
  1. HUMIRA [Suspect]
     Indication: COLITIS ULCERATIVE
     Dates: start: 20110701

REACTIONS (7)
  - MALAISE [None]
  - ABDOMINAL PAIN [None]
  - JOINT SWELLING [None]
  - DIARRHOEA [None]
  - ARTHRALGIA [None]
  - NAUSEA [None]
  - PYREXIA [None]
